FAERS Safety Report 13041257 (Version 1)
Quarter: 2016Q4

REPORT INFORMATION
  Report Type: Spontaneous
  Country: US (occurrence: US)
  Receive Date: 20161219
  Receipt Date: 20161219
  Transmission Date: 20170207
  Serious: No
  Sender: FDA-Public Use
  Company Number: US-AMNEAL PHARMACEUTICALS-2016AMN00684

PATIENT
  Sex: Female
  Weight: 65.76 kg

DRUGS (3)
  1. BUPROPION. [Concomitant]
     Active Substance: BUPROPION
     Dosage: UNK
  2. GABAPENTIN. [Concomitant]
     Active Substance: GABAPENTIN
  3. OXYCODONE AND ACETAMINOPHEN [Suspect]
     Active Substance: ACETAMINOPHEN\OXYCODONE HYDROCHLORIDE
     Indication: ANALGESIC THERAPY
     Dosage: UNK
     Dates: start: 20161003, end: 20161005

REACTIONS (3)
  - Drug ineffective [Not Recovered/Not Resolved]
  - Intentional overdose [Unknown]
  - Pain [Not Recovered/Not Resolved]
